FAERS Safety Report 8469426-3 (Version None)
Quarter: 2012Q2

REPORT INFORMATION
  Report Type: 
  Country: None (occurrence: None)
  Receive Date: 20120626
  Receipt Date: 20120615
  Transmission Date: 20120825
  Serious: Yes (Life-Threatening)
  Sender: FDA-Public Use
  Company Number: JP-BRISTOL-MYERS SQUIBB COMPANY-16690539

PATIENT
  Age: 71 Year
  Sex: Female
  Weight: 75 kg

DRUGS (5)
  1. FLUOROURACIL [Suspect]
     Indication: BREAST CANCER
     Dosage: TWICE EVERY 3 WEEKS X 4 COURSES
     Route: 042
     Dates: start: 20100922, end: 20101125
  2. CYCLOPHOSPHAMIDE [Suspect]
     Indication: BREAST CANCER
     Dosage: TWICE EVERY 3 WEEKS X 4 COURSES
     Route: 042
     Dates: start: 20100922, end: 20101125
  3. PACLITAXEL [Suspect]
     Indication: BREAST CANCER
     Dosage: WEEKLY X 12 COURSES
     Route: 042
     Dates: start: 20100630, end: 20100915
  4. PARAPLATIN [Suspect]
     Indication: BREAST CANCER
     Dosage: AUC 5 EVERY 3 WEEKS X 4 COURSES
     Route: 042
     Dates: start: 20100630, end: 20100915
  5. EPIRUBICIN [Suspect]
     Indication: BREAST CANCER
     Dosage: TWICE EVERY 3 WEEKS X 4 COURSES
     Route: 042
     Dates: start: 20100922, end: 20101125

REACTIONS (1)
  - ACUTE MONOCYTIC LEUKAEMIA [None]
